FAERS Safety Report 23710948 (Version 2)
Quarter: 2025Q2

REPORT INFORMATION
  Report Type: Spontaneous
  Country: US (occurrence: US)
  Receive Date: 20240405
  Receipt Date: 20250403
  Transmission Date: 20250716
  Serious: No
  Sender: ACCORD
  Company Number: US-Accord-381235

PATIENT
  Age: 43 Year
  Sex: Female

DRUGS (7)
  1. CARBOPLATIN [Suspect]
     Active Substance: CARBOPLATIN
     Indication: Breast cancer
     Dosage: NUMBER OF CYCLE: 3, RECEIVED AS A COMBINED CHEMOTHERAPY DRUG
     Dates: start: 20200121, end: 20200312
  2. DOCETAXEL [Suspect]
     Active Substance: DOCETAXEL
     Indication: Breast cancer
     Dosage: NUMBER OF CYCLE: 3
     Dates: start: 20200127, end: 20200312
  3. PERTUZUMAB [Suspect]
     Active Substance: PERTUZUMAB
     Indication: Breast cancer
     Dosage: NUMBER OF CYCLE: 3, RECEIVED AS A COMBINED CHEMOTHERAPY DRUG
     Dates: start: 20200127, end: 20200312
  4. TRASTUZUMAB [Suspect]
     Active Substance: TRASTUZUMAB
     Indication: Breast cancer
     Dosage: NUMBER OF CYCLE: 3, RECEIVED AS A COMBINED CHEMOTHERAPY DRUG
     Dates: start: 20200121, end: 20200312
  5. CARBOPLATIN [Suspect]
     Active Substance: CARBOPLATIN
     Indication: Breast cancer
  6. PERTUZUMAB [Suspect]
     Active Substance: PERTUZUMAB
     Indication: Breast cancer
  7. TRASTUZUMAB [Suspect]
     Active Substance: TRASTUZUMAB
     Indication: Breast cancer

REACTIONS (3)
  - Dacryostenosis acquired [Not Recovered/Not Resolved]
  - Dry eye [Unknown]
  - Off label use [Unknown]

NARRATIVE: CASE EVENT DATE: 20200201
